FAERS Safety Report 11999416 (Version 3)
Quarter: 2017Q1

REPORT INFORMATION
  Report Type: Spontaneous
  Country: US (occurrence: US)
  Receive Date: 20160204
  Receipt Date: 20170301
  Transmission Date: 20170428
  Serious: Yes (Other)
  Sender: FDA-Public Use
  Company Number: US-TEVA-630925ACC

PATIENT
  Sex: Female

DRUGS (2)
  1. PRENATAL VITAMINS [Concomitant]
     Active Substance: VITAMINS
     Dosage: DAILY
     Dates: start: 20160120
  2. PARAGARD T 380A [Suspect]
     Active Substance: COPPER
     Indication: CONTRACEPTION
     Dates: start: 20151013

REACTIONS (4)
  - Pregnancy on contraceptive [Unknown]
  - Device expulsion [Unknown]
  - Abdominal pain upper [Unknown]
  - Malaise [Unknown]
